FAERS Safety Report 16039972 (Version 1)
Quarter: 2019Q1

REPORT INFORMATION
  Report Type: Spontaneous
  Country: US (occurrence: US)
  Receive Date: 20190306
  Receipt Date: 20190306
  Transmission Date: 20190418
  Serious: Yes (Other)
  Sender: FDA-Public Use
  Company Number: US-GLAXOSMITHKLINE-US2019GSK037473

PATIENT
  Sex: Female

DRUGS (1)
  1. VALTREX [Suspect]
     Active Substance: VALACYCLOVIR HYDROCHLORIDE
     Indication: OPHTHALMIC HERPES ZOSTER
     Dosage: UNK, 1D

REACTIONS (7)
  - Macular fibrosis [Unknown]
  - Iridocyclitis [Unknown]
  - Herpes zoster [Unknown]
  - Retinopathy proliferative [Unknown]
  - Non-proliferative retinopathy [Unknown]
  - Retinal oedema [Unknown]
  - Eye infection [Unknown]
